FAERS Safety Report 5232624-6 (Version None)
Quarter: 2007Q1

REPORT INFORMATION
  Report Type: 
  Country: None (occurrence: None)
  Receive Date: 20070206
  Receipt Date: 20070206
  Transmission Date: 20070707
  Serious: Yes (Hospitalization)
  Sender: FDA-Public Use
  Company Number: None

PATIENT
  Sex: Male
  Weight: 97.5234 kg

DRUGS (21)
  1. SPIRONOLACTONE [Suspect]
     Indication: CARDIAC FAILURE CONGESTIVE
     Dosage: 25 MG DAILY PO
     Route: 048
     Dates: start: 20010101, end: 20061001
  2. LISINOPRIL [Suspect]
     Indication: CARDIAC FAILURE CONGESTIVE
     Dosage: 40 MG DAILY PO
     Route: 048
     Dates: start: 20010101
  3. LISINOPRIL [Suspect]
     Indication: DIABETES MELLITUS
     Dosage: 40 MG DAILY PO
     Route: 048
     Dates: start: 20010101
  4. LISINOPRIL [Suspect]
     Indication: HYPERTENSION
     Dosage: 40 MG DAILY PO
     Route: 048
     Dates: start: 20010101
  5. . [Concomitant]
  6. APAP TAB [Concomitant]
  7. ASPIRIN [Concomitant]
  8. DIGOXIN [Concomitant]
  9. ISOSORBIDE DINITRATE [Concomitant]
  10. FUROSEMIDE [Concomitant]
  11. ATENOLOL [Concomitant]
  12. TERAZOSIN HCL [Concomitant]
  13. LEVOTHYROXINE SODIUM [Concomitant]
  14. TRAZODONE HCL [Concomitant]
  15. RANITIDINE [Concomitant]
  16. LOVASTATIN [Concomitant]
  17. SPIRONOLACTONE [Concomitant]
  18. GLIPIZIDE [Concomitant]
  19. ROSIGLITAZONE [Concomitant]
  20. CARBIDOPA AND LEVODOPA [Concomitant]
  21. LOPERAMIDE HCL [Concomitant]

REACTIONS (3)
  - HYPERKALAEMIA [None]
  - RENAL FAILURE ACUTE [None]
  - TREATMENT NONCOMPLIANCE [None]
